FAERS Safety Report 7465912-3 (Version None)
Quarter: 2011Q2

REPORT INFORMATION
  Report Type: 
  Country: None (occurrence: None)
  Receive Date: 20110509
  Receipt Date: 20100415
  Transmission Date: 20111010
  Serious: Yes (Other)
  Sender: FDA-Public Use
  Company Number: US-ALEXION-A201000393

PATIENT
  Sex: Female
  Weight: 84.807 kg

DRUGS (15)
  1. SOLIRIS [Suspect]
     Indication: PAROXYSMAL NOCTURNAL HAEMOGLOBINURIA
     Dosage: UNK
     Route: 042
     Dates: start: 20071002
  2. FOLIC ACID [Concomitant]
     Dosage: 1 MG, QD
     Route: 048
  3. LASIX [Concomitant]
     Dosage: 20 MG, QD
  4. SOLIRIS [Suspect]
     Dosage: 900 MG, Q2W
     Route: 042
  5. PLAVIX [Concomitant]
     Dosage: 75 MG, QD
  6. TYLENOL (CAPLET) [Concomitant]
     Indication: BACK PAIN
     Dosage: 650 MG, PRN
     Route: 048
  7. METOPROLOL TARTRATE [Concomitant]
     Dosage: 50 MG, BID
  8. QUINAPRIL [Concomitant]
     Dosage: 10 MG, QD
  9. COUMADIN [Concomitant]
     Indication: ANTICOAGULANT THERAPY
     Dosage: 2.5 MG, QD
  10. ARANESP [Concomitant]
     Dosage: 200 UG, Q2W
  11. TRENTAL [Concomitant]
     Dosage: 400 MG, TID
  12. TYLENOL W/ CODEINE NO. 3 [Concomitant]
     Indication: BACK PAIN
     Dosage: 1 TAB, Q 4H PRN
     Route: 048
  13. COUMADIN [Concomitant]
     Dosage: 5 MG, QD
  14. ASPIRIN [Concomitant]
     Dosage: 81 MG, QD
  15. PROTONIX [Concomitant]
     Dosage: 40 MG, QD
     Route: 048

REACTIONS (3)
  - OCCULT BLOOD POSITIVE [None]
  - ATRIAL FLUTTER [None]
  - RENAL FAILURE [None]
